FAERS Safety Report 12718644 (Version 1)
Quarter: 2016Q3

REPORT INFORMATION
  Report Type: Report from Study
  Country: US (occurrence: US)
  Receive Date: 20160906
  Receipt Date: 20160906
  Transmission Date: 20161109
  Serious: Yes (Hospitalization, Other)
  Sender: FDA-Public Use
  Company Number: US-BIOGEN-2016BI00285568

PATIENT
  Sex: Male

DRUGS (2)
  1. AVONEX [Suspect]
     Active Substance: INTERFERON BETA-1A
     Indication: MULTIPLE SCLEROSIS
     Route: 030
     Dates: start: 20100917
  2. AVONEX [Suspect]
     Active Substance: INTERFERON BETA-1A
     Route: 065

REACTIONS (8)
  - Deafness transitory [Unknown]
  - Hyperhidrosis [Unknown]
  - Musculoskeletal disorder [Unknown]
  - Palpitations [Unknown]
  - Tremor [Unknown]
  - Dyslexia [Unknown]
  - Visual impairment [Unknown]
  - Heart rate decreased [Recovered/Resolved with Sequelae]
